FAERS Safety Report 5148820-2 (Version None)
Quarter: 2006Q4

REPORT INFORMATION
  Report Type: 
  Country: None (occurrence: None)
  Receive Date: 20061113
  Receipt Date: 20061019
  Transmission Date: 20070319
  Serious: Yes (Hospitalization)
  Sender: FDA-Public Use
  Company Number: JP-BRACCO-BRO-010754

PATIENT
  Age: 59 Year
  Sex: Male
  Weight: 50 kg

DRUGS (10)
  1. IOPAMIRON [Suspect]
     Route: 050
     Dates: start: 20060911, end: 20060911
  2. IOPAMIRON [Suspect]
     Indication: COMPUTERISED TOMOGRAM
     Route: 050
     Dates: start: 20060911, end: 20060911
  3. TS 1 [Concomitant]
     Route: 050
  4. FAMOTIDINE [Concomitant]
     Route: 050
  5. MUCOSOLVAN [Concomitant]
     Route: 050
  6. MUCODYNE [Concomitant]
     Route: 050
  7. ACETAMINOPHEN [Concomitant]
     Route: 050
  8. PARIET [Concomitant]
     Route: 050
  9. RINDERON                           /00008501/ [Concomitant]
     Route: 050
  10. HOKUNALIN [Concomitant]
     Route: 050

REACTIONS (3)
  - BLOOD ALKALINE PHOSPHATASE INCREASED [None]
  - GAMMA-GLUTAMYLTRANSFERASE INCREASED [None]
  - TRANSAMINASES INCREASED [None]
